FAERS Safety Report 4318696-1 (Version None)
Quarter: 2004Q1

REPORT INFORMATION
  Report Type: 
  Country: None (occurrence: None)
  Receive Date: 20040315
  Receipt Date: 20040302
  Transmission Date: 20041129
  Serious: Yes (Hospitalization)
  Sender: FDA-Public Use
  Company Number: GBR-2004-0000928

PATIENT
  Age: 71 Year
  Sex: Male

DRUGS (4)
  1. OXYCONTIN [Suspect]
     Indication: ANALGESIC EFFECT
     Dosage: 10 MG, DAILY, ORAL
     Route: 048
     Dates: start: 20031001
  2. EULEXIN [Suspect]
     Indication: PROSTATE CANCER
     Dosage: 250 MG, DAILY, ORAL
     Route: 048
     Dates: start: 20031001, end: 20031128
  3. LAXOBERAL ^BOEHRINGER INGELHEIM^ (SODIUIM PICOSULFATE) SOLUTION [Concomitant]
  4. FRAGMIN (HEPARIN-FRACTION, SODIUM SALT) INJECTABLE [Concomitant]

REACTIONS (5)
  - CONDITION AGGRAVATED [None]
  - FEELING ABNORMAL [None]
  - LIVER FUNCTION TEST ABNORMAL [None]
  - MALAISE [None]
  - NAUSEA [None]
